FAERS Safety Report 10085132 (Version 1)
Quarter: 2014Q2

REPORT INFORMATION
  Report Type: Spontaneous
  Country: US (occurrence: None)
  Receive Date: 20140409
  Receipt Date: 20140409
  Transmission Date: 20141212
  Serious: Yes (Hospitalization)
  Sender: FDA-Public Use
  Company Number: SP06602

PATIENT
  Age: 49 Year
  Sex: Female
  Weight: 104.33 kg

DRUGS (5)
  1. OSMOPREP [Suspect]
     Indication: BOWEL PREPARATION
     Dosage: 28 TABLETS, ORAL
     Route: 048
  2. ACYCLOVIR [Concomitant]
  3. OXYCODONE/ACETAMINOPHEN [Concomitant]
  4. METRONIDAZOLE [Concomitant]
  5. IBUPROFEN [Concomitant]

REACTIONS (1)
  - Renal failure acute [None]
